FAERS Safety Report 8934279 (Version 1)
Quarter: 2012Q4

REPORT INFORMATION
  Report Type: 
  Country: US (occurrence: US)
  Receive Date: 20121129
  Receipt Date: 20121129
  Transmission Date: 20130627
  Serious: No
  Sender: FDA-Public Use
  Company Number: US-PFIZER INC-2012297621

PATIENT
  Sex: Female

DRUGS (5)
  1. LYRICA [Suspect]
     Indication: NEUROPATHY
     Dosage: UNK
  2. GABAPENTIN [Suspect]
     Dosage: UNK
  3. TRAMADOL HCL [Suspect]
     Indication: NEUROPATHY
     Dosage: UNK
  4. AMITRIPTYLINE [Suspect]
     Dosage: UNK
  5. CYMBALTA [Suspect]
     Dosage: UNK

REACTIONS (2)
  - Visual impairment [Unknown]
  - Drug ineffective [Unknown]
